FAERS Safety Report 4682748-7 (Version None)
Quarter: 2005Q2

REPORT INFORMATION
  Report Type: 
  Country: None (occurrence: None)
  Receive Date: 20050602
  Receipt Date: 20050418
  Transmission Date: 20051028
  Serious: No
  Sender: FDA-Public Use
  Company Number: USA050495913

PATIENT
  Age: 51 Year
  Sex: Female
  Weight: 59 kg

DRUGS (4)
  1. CYMBALTA [Suspect]
     Indication: DEPRESSION
     Dosage: 60 MG DAY
     Dates: start: 20050216
  2. SYNTHROID [Concomitant]
  3. TAMOXIFEN [Concomitant]
  4. LIPITOR [Concomitant]

REACTIONS (8)
  - ABDOMINAL DISTENSION [None]
  - DIZZINESS [None]
  - ERUCTATION [None]
  - EYE PRURITUS [None]
  - FATIGUE [None]
  - FLATULENCE [None]
  - PRURITUS [None]
  - SWELLING FACE [None]
